FAERS Safety Report 5477227-3 (Version None)
Quarter: 2007Q4

REPORT INFORMATION
  Report Type: 
  Country: None (occurrence: None)
  Receive Date: 20071004
  Receipt Date: 20070925
  Transmission Date: 20080405
  Serious: Yes (Other)
  Sender: FDA-Public Use
  Company Number: US-ELI_LILLY_AND_COMPANY-US200708002077

PATIENT
  Sex: Female

DRUGS (1)
  1. FORTEO [Suspect]
     Indication: OSTEOPOROSIS
     Dates: start: 20060401

REACTIONS (5)
  - GINGIVAL DISORDER [None]
  - MOUTH ULCERATION [None]
  - ORAL PAIN [None]
  - SALIVARY GLAND CANCER [None]
  - TOOTH INJURY [None]
